FAERS Safety Report 15159679 (Version 1)
Quarter: 2018Q3

REPORT INFORMATION
  Report Type: Spontaneous
  Country: JP (occurrence: JP)
  Receive Date: 20180718
  Receipt Date: 20180718
  Transmission Date: 20181010
  Serious: Yes (Life-Threatening, Hospitalization, Other)
  Sender: FDA-Public Use
  Company Number: JP-PFIZER INC-2018284812

PATIENT
  Age: 80 Year
  Sex: Female

DRUGS (5)
  1. TRAMAL [Suspect]
     Active Substance: TRAMADOL
     Dosage: 75 MG, DAILY
  2. MAGNESIUM OXIDE. [Concomitant]
     Active Substance: MAGNESIUM OXIDE
     Dosage: UNK
  3. LYRICA [Suspect]
     Active Substance: PREGABALIN
     Dosage: 75 MG, UNK
  4. TRAMAL [Suspect]
     Active Substance: TRAMADOL
     Dosage: 150 MG, DAILY
  5. LYRICA [Suspect]
     Active Substance: PREGABALIN
     Dosage: 150 MG, DAILY
     Route: 048

REACTIONS (5)
  - Ileus [Recovering/Resolving]
  - Metastases to lymph nodes [Unknown]
  - Therapeutic response decreased [Unknown]
  - Colon neoplasm [Recovering/Resolving]
  - Constipation [Recovering/Resolving]
